FAERS Safety Report 7190169-0 (Version None)
Quarter: 2010Q4

REPORT INFORMATION
  Report Type: 
  Country: None (occurrence: None)
  Receive Date: 20101223
  Receipt Date: 20101214
  Transmission Date: 20110411
  Serious: Yes (Hospitalization)
  Sender: FDA-Public Use
  Company Number: DE-JNJFOC-20101203834

PATIENT
  Age: 47 Year
  Sex: Male

DRUGS (5)
  1. SIMPONI [Suspect]
     Indication: RHEUMATOID ARTHRITIS
     Route: 058
  2. METHOTREXATE [Concomitant]
     Route: 058
  3. PREDNISONE [Concomitant]
     Route: 048
  4. VALORON [Concomitant]
     Route: 048
  5. COLECALCIFEROL [Concomitant]
     Route: 048

REACTIONS (2)
  - CHILLS [None]
  - PYREXIA [None]
